FAERS Safety Report 17853126 (Version 1)
Quarter: 2020Q2

REPORT INFORMATION
  Report Type: Spontaneous
  Country: PL (occurrence: PL)
  Receive Date: 20200603
  Receipt Date: 20200603
  Transmission Date: 20200714
  Serious: Yes (Other)
  Sender: FDA-Public Use
  Company Number: PL-TEVA-2020-PL-1242813

PATIENT
  Age: 30 Year
  Sex: Female
  Weight: 47 kg

DRUGS (3)
  1. CYCLOPHOSPHAMIDE. [Suspect]
     Active Substance: CYCLOPHOSPHAMIDE
     Dosage: 100 MG
     Route: 042
     Dates: start: 20170103
  2. DOXORUBICINE [Suspect]
     Active Substance: DOXORUBICIN
     Dosage: 30 MG
     Route: 042
     Dates: start: 20170103
  3. DACARBAZINE. [Suspect]
     Active Substance: DACARBAZINE
     Dosage: 300 MG
     Route: 042
     Dates: start: 20170103

REACTIONS (1)
  - Neutropenia [Unknown]

NARRATIVE: CASE EVENT DATE: 20170817
